FAERS Safety Report 16110640 (Version 2)
Quarter: 2019Q2

REPORT INFORMATION
  Report Type: Report from Study
  Country: US (occurrence: US)
  Receive Date: 20190325
  Receipt Date: 20190604
  Transmission Date: 20190711
  Serious: Yes (Other)
  Sender: FDA-Public Use
  Company Number: US-BRISTOL-MYERS SQUIBB COMPANY-BMS-2019-029145

PATIENT
  Sex: Female
  Weight: 143.31 kg

DRUGS (1)
  1. ABATACEPT [Suspect]
     Active Substance: ABATACEPT
     Indication: RHEUMATOID ARTHRITIS
     Dosage: 125 MILLIGRAM, QWK
     Route: 058
     Dates: start: 201902

REACTIONS (9)
  - Asthenia [Unknown]
  - Ear infection [Unknown]
  - Drug ineffective [Unknown]
  - Diarrhoea [Unknown]
  - Sinusitis [Unknown]
  - Chills [Unknown]
  - Pyrexia [Unknown]
  - Viral infection [Unknown]
  - Feeling abnormal [Unknown]
